FAERS Safety Report 8974817 (Version 1)
Quarter: 2012Q4

REPORT INFORMATION
  Report Type: Spontaneous
  Country: US (occurrence: None)
  Receive Date: 20121218
  Receipt Date: 20121218
  Transmission Date: 20130627
  Serious: Yes (Other)
  Sender: FDA-Public Use
  Company Number: None

PATIENT
  Age: 65 Year
  Sex: Male

DRUGS (2)
  1. BUPROPION [Suspect]
     Indication: DEPRESSION
     Dates: start: 201212
  2. BUPROPION [Suspect]
     Indication: MS
     Dates: start: 201212

REACTIONS (3)
  - Muscular weakness [None]
  - Gait disturbance [None]
  - Balance disorder [None]
